FAERS Safety Report 6434446-7 (Version None)
Quarter: 2009Q4

REPORT INFORMATION
  Report Type: 
  Country: None (occurrence: None)
  Receive Date: 20091110
  Receipt Date: 20091029
  Transmission Date: 20100525
  Serious: Yes (Other)
  Sender: FDA-Public Use
  Company Number: JP-PFIZER INC-2009280813

PATIENT
  Age: 77 Year
  Sex: Male
  Weight: 72 kg

DRUGS (11)
  1. SUNITINIB MALATE [Suspect]
     Indication: RENAL CELL CARCINOMA
     Dosage: 25 MG, 1X/DAY
     Route: 048
     Dates: start: 20090709
  2. HARNAL [Concomitant]
     Dosage: UNK
     Route: 048
  3. VALSARTAN [Concomitant]
     Dosage: UNK
     Route: 048
  4. ADALAT CC [Concomitant]
     Dosage: UNK
     Route: 048
  5. METHYCOBAL [Concomitant]
     Dosage: UNK
     Route: 048
  6. MYSLEE [Concomitant]
     Dosage: UNK
     Route: 048
  7. HALCION [Concomitant]
     Dosage: UNK
     Route: 048
  8. FERROMIA [Concomitant]
     Dosage: UNK
     Route: 048
  9. LOXOPROFEN SODIUM [Concomitant]
     Dosage: UNK
     Route: 048
  10. MUCOSTA [Concomitant]
     Dosage: UNK
     Route: 048
  11. ALDACTONE [Concomitant]
     Dosage: UNK
     Route: 048
     Dates: start: 20090712

REACTIONS (2)
  - ASCITES [None]
  - FLUID RETENTION [None]
